FAERS Safety Report 21716040 (Version 1)
Quarter: 2022Q4

REPORT INFORMATION
  Report Type: Spontaneous
  Country: US (occurrence: None)
  Receive Date: 20221209
  Receipt Date: 20221209
  Transmission Date: 20230113
  Serious: Yes (Hospitalization)
  Sender: FDA-Public Use
  Company Number: None

PATIENT
  Sex: Male

DRUGS (2)
  1. FORTEO [Suspect]
     Active Substance: TERIPARATIDE
     Indication: Osteoarthritis
     Dosage: 600 MCG/2.4 ML??INJECT 20 MCG UNDER THE SKIN (SUBCUTANEOUS INJECTION) ONCE DAILY? ?
     Route: 058
     Dates: start: 20220610
  2. ENVARSUS [Concomitant]

REACTIONS (1)
  - Unevaluable event [None]
